FAERS Safety Report 8605386-X (Version None)
Quarter: 2012Q3

REPORT INFORMATION
  Report Type: 
  Country: None (occurrence: None)
  Receive Date: 20120820
  Receipt Date: 20120814
  Transmission Date: 20120928
  Serious: Yes (Hospitalization)
  Sender: FDA-Public Use
  Company Number: US-PFIZER INC-2012199544

PATIENT
  Age: 49 Year
  Sex: Female
  Weight: 54.422 kg

DRUGS (5)
  1. VITAMIN TAB [Concomitant]
     Indication: WEIGHT DECREASED
     Dosage: UNK,DAILY
  2. NEURONTIN [Suspect]
     Indication: NEUROPATHY PERIPHERAL
     Dosage: 400 MG, UNK
     Route: 048
  3. GABAPENTIN [Suspect]
     Indication: NEUROPATHY PERIPHERAL
     Dosage: 400 MG, UNK
  4. FOLIC ACID [Concomitant]
     Indication: WEIGHT DECREASED
     Dosage: UNK, DAILY
  5. GABAPENTIN [Suspect]
     Dosage: UNK

REACTIONS (2)
  - LABORATORY TEST ABNORMAL [None]
  - DRUG INEFFECTIVE [None]
